FAERS Safety Report 6405532-2 (Version None)
Quarter: 2009Q4

REPORT INFORMATION
  Report Type: 
  Country: None (occurrence: None)
  Receive Date: 20091019
  Receipt Date: 20091007
  Transmission Date: 20100525
  Serious: Yes (Other)
  Sender: FDA-Public Use
  Company Number: JP-PFIZER INC-2009271157

PATIENT

DRUGS (1)
  1. AZULFIDINE [Suspect]
     Route: 048

REACTIONS (3)
  - BRADYKINESIA [None]
  - DELAYED RECOVERY FROM ANAESTHESIA [None]
  - SURGERY [None]
